FAERS Safety Report 6185170-X (Version None)
Quarter: 2009Q2

REPORT INFORMATION
  Report Type: 
  Country: None (occurrence: None)
  Receive Date: 20090511
  Receipt Date: 20090429
  Transmission Date: 20091009
  Serious: Yes (Hospitalization, Other)
  Sender: FDA-Public Use
  Company Number: US-PFIZER INC-2009206373

PATIENT
  Sex: Female

DRUGS (5)
  1. TIKOSYN [Suspect]
  2. DIAMOX [Concomitant]
  3. BUMEX [Concomitant]
  4. MEGACE [Concomitant]
  5. CARDIZEM [Concomitant]
     Indication: CARDIAC DISORDER

REACTIONS (6)
  - CARDIAC FAILURE CONGESTIVE [None]
  - CHRONIC OBSTRUCTIVE PULMONARY DISEASE [None]
  - DRUG DOSE OMISSION [None]
  - EMPHYSEMA [None]
  - LUNG INFECTION [None]
  - MECHANICAL VENTILATION [None]
